FAERS Safety Report 21558206 (Version 2)
Quarter: 2022Q4

REPORT INFORMATION
  Report Type: Report from Study
  Country: MX (occurrence: MX)
  Receive Date: 20221107
  Receipt Date: 20221213
  Transmission Date: 20230113
  Serious: Yes (Hospitalization, Other)
  Sender: FDA-Public Use
  Company Number: MX-BRISTOL-MYERS SQUIBB COMPANY-2022-130819

PATIENT
  Age: 77 Year
  Sex: Female
  Weight: 59 kg

DRUGS (1)
  1. OPDIVO [Suspect]
     Active Substance: NIVOLUMAB
     Indication: Malignant melanoma
     Dosage: EVERY 21 DAYS
     Route: 042
     Dates: start: 20210921, end: 20220909

REACTIONS (7)
  - Biliary obstruction [Unknown]
  - Gastrointestinal disorder [Not Recovered/Not Resolved]
  - Intentional product use issue [Unknown]
  - Nausea [Unknown]
  - Vomiting [Unknown]
  - Malignant neoplasm progression [Unknown]
  - Condition aggravated [Not Recovered/Not Resolved]

NARRATIVE: CASE EVENT DATE: 20221013
